FAERS Safety Report 10923838 (Version 1)
Quarter: 2015Q1

REPORT INFORMATION
  Report Type: Spontaneous
  Country: US (occurrence: None)
  Receive Date: 20150316
  Receipt Date: 20150316
  Transmission Date: 20150721
  Serious: Yes (Death, Hospitalization)
  Sender: FDA-Public Use
  Company Number: None

PATIENT
  Age: 84 Year
  Sex: Male
  Weight: 77.11 kg

DRUGS (12)
  1. CLIMAX [Concomitant]
  2. GABAPENTIN. [Concomitant]
     Active Substance: GABAPENTIN
  3. ATORVASTATIN [Concomitant]
     Active Substance: ATORVASTATIN
  4. OMEPRAZOLE DR [Concomitant]
     Active Substance: OMEPRAZOLE
  5. CENTRUM SILVER [Concomitant]
     Active Substance: VITAMINS
  6. SULFAMETHOXAZOLE-TMP [Concomitant]
     Active Substance: SULFAMETHOXAZOLE\TRIMETHOPRIM
  7. JUICE PLUS + [Concomitant]
  8. MECLIZINE [Concomitant]
     Active Substance: MECLIZINE\MECLIZINE HYDROCHLORIDE
  9. BAYER ASPIRIN [Concomitant]
     Active Substance: ASPIRIN
  10. MYRBETRIQ [Suspect]
     Active Substance: MIRABEGRON
     Indication: MICTURITION URGENCY
     Dosage: 1 PILL
     Route: 048
     Dates: start: 20150217, end: 20150226
  11. CALCITRIOL. [Concomitant]
     Active Substance: CALCITRIOL
  12. CELAPATITE BONE BUILDER [Concomitant]

REACTIONS (12)
  - Asthenia [None]
  - Anuria [None]
  - Dysstasia [None]
  - No therapeutic response [None]
  - General physical health deterioration [None]
  - Weight decreased [None]
  - Dyspnoea [None]
  - Muscular weakness [None]
  - Multi-organ failure [None]
  - Dysphagia [None]
  - Coma [None]
  - Blood pressure decreased [None]

NARRATIVE: CASE EVENT DATE: 20150314
